FAERS Safety Report 8960481 (Version 1)
Quarter: 2012Q4

REPORT INFORMATION
  Report Type: Spontaneous
  Country: DK (occurrence: None)
  Receive Date: 20121203
  Receipt Date: 20121203
  Transmission Date: 20130627
  Serious: Yes (Hospitalization, Other)
  Sender: FDA-Public Use
  Company Number: 2012MA013648

PATIENT
  Age: 58 Year
  Sex: Male

DRUGS (23)
  1. ISOSORBIDE MONONITRATE [Suspect]
     Indication: RHEUMATOID ARTHRITIS
  2. METHOTREXATE (METHOTREXATE) [Suspect]
     Dates: start: 2005, end: 201011
  3. NICORANDIL [Suspect]
     Route: 048
  4. ETANERCEPT [Suspect]
     Route: 058
     Dates: start: 20120420, end: 20120519
  5. ACETYLSALICYLIC ACID [Suspect]
     Route: 048
  6. ATORVASTATIN [Concomitant]
  7. LIRAGLUTIDE [Concomitant]
  8. AMLODIPINE [Concomitant]
  9. INSULIN [Concomitant]
  10. BISOPROLOL [Concomitant]
  11. CANDESARTAN [Concomitant]
  12. FUROSEMIDE [Concomitant]
  13. NIZATIDINE [Concomitant]
  14. MORPHINE [Concomitant]
  15. ORAMORPH [Concomitant]
  16. PARACETAMOL [Concomitant]
  17. PIZOTIFEN [Concomitant]
  18. GLYCERYL TRINITRATE [Concomitant]
  19. SALBUTAMOL [Concomitant]
  20. RIVAROXABAN [Concomitant]
  21. AMITRIPTYLINE [Concomitant]
  22. GABAPENTIN [Concomitant]
  23. SULFASALAZINE [Concomitant]

REACTIONS (2)
  - Cellulitis [None]
  - Troponin T increased [None]
